FAERS Safety Report 8464043-3 (Version None)
Quarter: 2012Q2

REPORT INFORMATION
  Report Type: 
  Country: None (occurrence: None)
  Receive Date: 20120625
  Receipt Date: 20120611
  Transmission Date: 20120825
  Serious: Yes (Hospitalization)
  Sender: FDA-Public Use
  Company Number: US-BAYER-2012-060487

PATIENT
  Age: 85 Year
  Sex: Female
  Weight: 90 kg

DRUGS (16)
  1. FUROSEMIDE [Concomitant]
     Route: 048
  2. VENTOLIN [Concomitant]
     Route: 055
  3. XARELTO [Interacting]
     Indication: CEREBROVASCULAR ACCIDENT PROPHYLAXIS
  4. FLUTICASONE PROPIONATE/SALMETEROL [Concomitant]
     Route: 055
  5. FERROUS SULFATE TAB [Concomitant]
     Route: 048
  6. XARELTO [Interacting]
     Indication: ATRIAL FIBRILLATION
     Dosage: 20 MG, QD
     Route: 048
     Dates: start: 20120114, end: 20120319
  7. ASPIRIN [Suspect]
  8. ALBUTEROL [Concomitant]
     Indication: DYSPNOEA
  9. MICARDIS [Concomitant]
     Route: 048
  10. DRONEDARONE HCL [Concomitant]
     Route: 048
  11. SINGULAIR [Concomitant]
     Route: 048
  12. FLUOXETINE [Concomitant]
     Route: 048
  13. HYDROCODONE BITARTRATE + ACETAMINOPHEN [Concomitant]
     Route: 048
  14. METOPROLOL TARTRATE [Concomitant]
     Route: 048
  15. FEMARA [Concomitant]
     Route: 048
  16. POTASSIUM CHLORIDE [Concomitant]
     Route: 048

REACTIONS (2)
  - RECTAL HAEMORRHAGE [None]
  - WEIGHT DECREASED [None]
